FAERS Safety Report 10246452 (Version 1)
Quarter: 2014Q2

REPORT INFORMATION
  Report Type: Spontaneous
  Country: US (occurrence: US)
  Receive Date: 20140619
  Receipt Date: 20140619
  Transmission Date: 20141212
  Serious: No
  Sender: FDA-Public Use
  Company Number: US-PFIZER INC-2014166127

PATIENT
  Sex: Female

DRUGS (12)
  1. FLAGYL [Suspect]
     Dosage: UNK
  2. PREDNISONE [Suspect]
     Dosage: UNK
  3. LORTAB [Suspect]
     Dosage: UNK
  4. STADOL [Suspect]
     Dosage: UNK
  5. DEMEROL [Suspect]
     Dosage: UNK
  6. ULTRAM [Suspect]
     Dosage: UNK
  7. KEFLEX [Suspect]
     Dosage: UNK
  8. DARVOCET [Suspect]
     Dosage: UNK
  9. LEVAQUIN [Suspect]
     Dosage: UNK
  10. PYRIDIUM [Suspect]
     Dosage: UNK
  11. VERSED [Suspect]
     Dosage: UNK
  12. CEPHALOSPORIN C [Suspect]
     Dosage: UNK

REACTIONS (1)
  - Drug hypersensitivity [Unknown]
